FAERS Safety Report 7998988-5 (Version None)
Quarter: 2011Q4

REPORT INFORMATION
  Report Type: 
  Country: None (occurrence: None)
  Receive Date: 20111221
  Receipt Date: 20111214
  Transmission Date: 20120403
  Serious: No
  Sender: FDA-Public Use
  Company Number: US-US-EMD SERONO, INC.-7087429

PATIENT
  Sex: Female

DRUGS (1)
  1. REBIF [Suspect]
     Indication: MULTIPLE SCLEROSIS
     Route: 058
     Dates: start: 20110830

REACTIONS (3)
  - NASOPHARYNGITIS [None]
  - INJECTION SITE ERYTHEMA [None]
  - INFLUENZA LIKE ILLNESS [None]
